FAERS Safety Report 16950169 (Version 1)
Quarter: 2019Q4

REPORT INFORMATION
  Report Type: Spontaneous
  Country: AR (occurrence: AR)
  Receive Date: 20190902
  Receipt Date: 20190902
  Transmission Date: 20200122
  Serious: Yes (Life-Threatening, Disabling, Other)
  Sender: FDA-Public Use
  Company Number: None

PATIENT
  Age: 51 Year
  Sex: Female
  Weight: 74 kg

DRUGS (2)
  1. GAVIN PREGABALINA [Suspect]
     Active Substance: PREGABALIN
     Indication: NEUROPATHY PERIPHERAL
     Route: 048
     Dates: start: 20190501, end: 20190829
  2. ESCITALOPRAM [Concomitant]
     Active Substance: ESCITALOPRAM OXALATE

REACTIONS (8)
  - Depression [None]
  - Fatigue [None]
  - Asthenia [None]
  - Vision blurred [None]
  - Insomnia [None]
  - Flatulence [None]
  - Speech disorder [None]
  - Headache [None]

NARRATIVE: CASE EVENT DATE: 20190814
